FAERS Safety Report 12442929 (Version 1)
Quarter: 2016Q2

REPORT INFORMATION
  Report Type: Spontaneous
  Country: US (occurrence: US)
  Receive Date: 20160607
  Receipt Date: 20160607
  Transmission Date: 20160815
  Serious: No
  Sender: FDA-Public Use
  Company Number: US-ACTAVIS-2015-17545

PATIENT
  Sex: Female

DRUGS (1)
  1. OMEPRAZOLE (ACTAVIS LABORATORIES FL) [Suspect]
     Active Substance: OMEPRAZOLE
     Indication: GASTROOESOPHAGEAL REFLUX DISEASE
     Dosage: UNK UNK, UNKNOWN
     Route: 065

REACTIONS (1)
  - Drug ineffective [Unknown]
